FAERS Safety Report 25080138 (Version 2)
Quarter: 2025Q1

REPORT INFORMATION
  Report Type: Spontaneous
  Country: US (occurrence: US)
  Receive Date: 20250314
  Receipt Date: 20250317
  Transmission Date: 20250408
  Serious: Yes (Life-Threatening, Other)
  Sender: BRISTOL-MYERS SQUIBB COMPANY
  Company Number: US-BRISTOL-MYERS SQUIBB COMPANY-2025-035725

PATIENT
  Age: 52 Year
  Sex: Female

DRUGS (5)
  1. COBENFY [Suspect]
     Active Substance: TROSPIUM CHLORIDE\XANOMELINE
     Indication: Schizophrenia
     Dosage: DAY 1 AND DAY 2 DOSAGE 50MG/20MG, 1 CAPSULE TWICE A DAY.
     Route: 048
     Dates: start: 2025
  2. COBENFY [Suspect]
     Active Substance: TROSPIUM CHLORIDE\XANOMELINE
     Dosage: FROM DAY 3 ONWARDS 100MG/20MG 1 CAPSULE TWICE A DAY
     Route: 048
     Dates: start: 2025, end: 20250303
  3. HALDOL [Concomitant]
     Active Substance: HALOPERIDOL
     Indication: Product used for unknown indication
  4. HALDOL [Concomitant]
     Active Substance: HALOPERIDOL
  5. OLANZAPINE [Concomitant]
     Active Substance: OLANZAPINE
     Indication: Product used for unknown indication

REACTIONS (1)
  - Suicide attempt [Unknown]
